FAERS Safety Report 19467752 (Version 1)
Quarter: 2021Q2

REPORT INFORMATION
  Report Type: Spontaneous
  Country: US (occurrence: US)
  Receive Date: 20210628
  Receipt Date: 20210628
  Transmission Date: 20210717
  Serious: Yes (Other)
  Sender: FDA-Public Use
  Company Number: None

PATIENT
  Age: 82 Year
  Sex: Female
  Weight: 73.66 kg

DRUGS (19)
  1. PENTOXIFYLLINE. [Concomitant]
     Active Substance: PENTOXIFYLLINE
  2. LOSARTAN. [Concomitant]
     Active Substance: LOSARTAN
  3. PANTOPRAZOLE [Concomitant]
     Active Substance: PANTOPRAZOLE
  4. ROPINIROLE. [Concomitant]
     Active Substance: ROPINIROLE
  5. FUROSEMIDE. [Concomitant]
     Active Substance: FUROSEMIDE
  6. ROZLYTREK [Suspect]
     Active Substance: ENTRECTINIB
     Indication: NEOPLASM MALIGNANT
     Route: 048
     Dates: start: 20210316
  7. MECLIZINE [Concomitant]
     Active Substance: MECLIZINE HYDROCHLORIDE
  8. AMANTADINE. [Concomitant]
     Active Substance: AMANTADINE HYDROCHLORIDE
  9. CLOBETASOL [Concomitant]
     Active Substance: CLOBETASOL
  10. LATANOPROST. [Concomitant]
     Active Substance: LATANOPROST
  11. RIVASTIGMINE. [Concomitant]
     Active Substance: RIVASTIGMINE
  12. ATORVASTATIN [Concomitant]
     Active Substance: ATORVASTATIN
  13. ENTRECTINIB [Concomitant]
     Active Substance: ENTRECTINIB
  14. XARELTO [Concomitant]
     Active Substance: RIVAROXABAN
  15. ADVAIR DISKUS [Concomitant]
     Active Substance: FLUTICASONE PROPIONATE\SALMETEROL XINAFOATE
  16. CARBIDOPA?LEVODOPA?ENTACAPONE [Concomitant]
     Active Substance: CARBIDOPA\ENTACAPONE\LEVODOPA
  17. GABAPENTIN. [Concomitant]
     Active Substance: GABAPENTIN
  18. LINZESS [Concomitant]
     Active Substance: LINACLOTIDE
  19. FLOMAX [Concomitant]
     Active Substance: TAMSULOSIN HYDROCHLORIDE

REACTIONS (1)
  - Hospice care [None]

NARRATIVE: CASE EVENT DATE: 20210623
